FAERS Safety Report 11844651 (Version 1)
Quarter: 2015Q4

REPORT INFORMATION
  Report Type: Spontaneous
  Country: US (occurrence: None)
  Receive Date: 20151216
  Receipt Date: 20151216
  Transmission Date: 20160305
  Serious: Yes (Hospitalization, Disabling)
  Sender: FDA-Public Use
  Company Number: None

PATIENT
  Age: 52 Year
  Sex: Female
  Weight: 90.72 kg

DRUGS (9)
  1. ASPIRIN. [Concomitant]
     Active Substance: ASPIRIN
  2. LOSARTAN. [Concomitant]
     Active Substance: LOSARTAN
  3. WELCHOL [Concomitant]
     Active Substance: COLESEVELAM HYDROCHLORIDE
  4. HYDROCHLOROTHIAZIDE 25 MG. TEVA PHARMAUCEUTIALS [Suspect]
     Active Substance: HYDROCHLOROTHIAZIDE
     Indication: HYPERTENSION
     Dosage: 1 PILL ONCE DAILY TAKEN BY MOUTH
     Route: 048
     Dates: start: 20151102, end: 20151103
  5. ATENOLOL. [Concomitant]
     Active Substance: ATENOLOL
  6. HYDROCHLOROTHIAZIDE 25 MG. TEVA PHARMAUCEUTIALS [Suspect]
     Active Substance: HYDROCHLOROTHIAZIDE
     Indication: WEIGHT INCREASED
     Dosage: 1 PILL ONCE DAILY TAKEN BY MOUTH
     Route: 048
     Dates: start: 20151102, end: 20151103
  7. NIFEDIPINE. [Concomitant]
     Active Substance: NIFEDIPINE
  8. LIPITOR [Concomitant]
     Active Substance: ATORVASTATIN CALCIUM
  9. ETODOLAC. [Concomitant]
     Active Substance: ETODOLAC

REACTIONS (14)
  - Asthenia [None]
  - Malaise [None]
  - Head titubation [None]
  - Pericardial effusion [None]
  - Hypertension [None]
  - Nausea [None]
  - Vision blurred [None]
  - Palpitations [None]
  - Somnolence [None]
  - Dizziness [None]
  - Fatigue [None]
  - Blood pressure inadequately controlled [None]
  - Hypoaesthesia [None]
  - Drug interaction [None]

NARRATIVE: CASE EVENT DATE: 20021111
